FAERS Safety Report 8719950 (Version 3)
Quarter: 2013Q1

REPORT INFORMATION
  Report Type: Spontaneous
  Country: US (occurrence: US)
  Receive Date: 20120813
  Receipt Date: 20130108
  Transmission Date: 20140127
  Serious: Yes (Hospitalization)
  Sender: FDA-Public Use
  Company Number: US-BAYER-2012-080944

PATIENT
  Age: 28 Year
  Sex: Female
  Weight: 82.54 kg

DRUGS (6)
  1. YAZ [Suspect]
     Indication: PREMENSTRUAL SYNDROME
  2. YASMIN [Suspect]
  3. OTHER ANALGESICS AND ANTIPYRETICS [Concomitant]
     Dosage: UNK
     Dates: start: 2003
  4. MULTIVITAMIN [Concomitant]
     Dosage: UNK
     Dates: start: 2006
  5. NUTRITIONAL SUPPLEMENT [Concomitant]
     Indication: SUPPLEMENTATION THERAPY
     Dosage: UNK
     Dates: start: 2006
  6. EXCEDRIN [Concomitant]

REACTIONS (9)
  - Cerebrovascular accident [None]
  - Injury [None]
  - Pain [None]
  - General physical health deterioration [None]
  - Emotional distress [None]
  - Pain [None]
  - Anxiety [None]
  - Stress [None]
  - Fatigue [None]
